FAERS Safety Report 4361014-3 (Version None)
Quarter: 2004Q2

REPORT INFORMATION
  Report Type: 
  Country: None (occurrence: None)
  Receive Date: 20040517
  Receipt Date: 20040506
  Transmission Date: 20050107
  Serious: Yes (Other)
  Sender: FDA-Public Use
  Company Number: ES-JNJFOC-20040400044

PATIENT
  Age: 45 Year
  Sex: Female
  Weight: 50 kg

DRUGS (5)
  1. REMICADE (INFLIXIMAB, RECOMBINANT) LYOPHILIZED POWDER [Suspect]
     Indication: COLITIS ULCERATIVE
     Dosage: 5 MG/KG, INTRAVENOUS
     Route: 042
     Dates: start: 20031215, end: 20031215
  2. REMICADE (INFLIXIMAB, RECOMBINANT) LYOPHILIZED POWDER [Suspect]
     Indication: COLITIS ULCERATIVE
     Dosage: 5 MG/KG, INTRAVENOUS
     Route: 042
     Dates: start: 20031229, end: 20031229
  3. REMICADE (INFLIXIMAB, RECOMBINANT) LYOPHILIZED POWDER [Suspect]
     Indication: COLITIS ULCERATIVE
     Dosage: 5 MG/KG, INTRAVENOUS
     Route: 042
     Dates: start: 20040126, end: 20040126
  4. AZATHIOPRINE (UNKNOWN) AZATHIOPRINE [Concomitant]
  5. PREDNISONE (UNKNOWN) PREDNISONE [Concomitant]

REACTIONS (5)
  - B-CELL LYMPHOMA [None]
  - EPSTEIN-BARR VIRUS ANTIGEN POSITIVE [None]
  - NON-HODGKIN'S LYMPHOMA [None]
  - PYREXIA [None]
  - RECTAL ULCER [None]
